FAERS Safety Report 8362185 (Version 3)
Quarter: 2012Q4

REPORT INFORMATION
  Report Type: 
  Country: US (occurrence: US)
  Receive Date: 20120130
  Receipt Date: 20121015
  Transmission Date: 20130627
  Serious: Yes (Death)
  Sender: FDA-Public Use
  Company Number: US-ROCHE-1034322

PATIENT
  Sex: Female
  Weight: 69.01 kg

DRUGS (8)
  1. AVASTIN [Suspect]
     Indication: NON-SMALL CELL LUNG CANCER
     Route: 065
     Dates: start: 20051018
  2. AVASTIN [Suspect]
     Indication: METASTASES TO BONE
  3. DOCETAXEL [Suspect]
     Indication: NON-SMALL CELL LUNG CANCER
     Route: 065
  4. DOCETAXEL [Suspect]
     Indication: METASTASES TO BONE
  5. MORPHINE [Concomitant]
     Dosage: 8 mg in 100 ml
     Route: 065
  6. TORADOL [Concomitant]
  7. ZOFRAN [Concomitant]
     Dosage: 4 mg in 250 ml NS
     Route: 065
  8. ZOMETA [Concomitant]
     Dosage: 4 ml in 250 ml NS
     Route: 065

REACTIONS (2)
  - Non-small cell lung cancer metastatic [Fatal]
  - Pain [Fatal]
